FAERS Safety Report 6156855-6 (Version None)
Quarter: 2009Q2

REPORT INFORMATION
  Report Type: 
  Country: None (occurrence: None)
  Receive Date: 20090413
  Receipt Date: 20090128
  Transmission Date: 20091009
  Serious: No
  Sender: FDA-Public Use
  Company Number: 2009BM000024

PATIENT
  Age: 20 Year
  Sex: Male
  Weight: 68.1575 kg

DRUGS (1)
  1. KUVAN [Suspect]
     Indication: PHENYLKETONURIA
     Dosage: 1300 MG;QD;PO
     Route: 048
     Dates: start: 20071018, end: 20080914

REACTIONS (2)
  - LETHARGY [None]
  - UPPER RESPIRATORY TRACT INFECTION [None]
